FAERS Safety Report 9536085 (Version 1)
Quarter: 2013Q2

REPORT INFORMATION
  Report Type: Spontaneous
  Country: US (occurrence: None)
  Receive Date: 20130517
  Receipt Date: 20130517
  Transmission Date: 20140414
  Serious: Yes (Other)
  Sender: FDA-Public Use
  Company Number: 1000044134

PATIENT
  Age: 48 Year
  Sex: Female

DRUGS (6)
  1. VIIBRYD (VILLAZODONE HYDROCHLORIDE) (10 MILLIGRAM, TABLETS) [Suspect]
     Indication: DEPRESSION
     Dosage: 10MG (10 MG, 1 IN 1 D), ORAL
     Route: 048
     Dates: start: 201303, end: 201303
  2. VIIBRYD (VILLAZODONE HYDROCHLORIDE) (10 MILLIGRAM, TABLETS) [Suspect]
     Indication: ANXIETY
     Dosage: 10MG (10 MG, 1 IN 1 D), ORAL
     Route: 048
     Dates: start: 201303, end: 201303
  3. VIIBRYD [Suspect]
     Indication: DEPRESSION
     Dosage: 40MG (40 MG, 1 IN 1 D), ORAL
     Route: 048
  4. VIIBRYD [Suspect]
     Indication: ANXIETY
     Dosage: 40MG (40 MG, 1 IN 1 D), ORAL
     Route: 048
  5. LAMICTAL (LAMOTRIGINE) (LAMOTRIGINE) [Concomitant]
  6. TAMOXIFEN (TAMOXIFEN) (TAMOXIFEN) [Concomitant]

REACTIONS (1)
  - Alopecia [None]
